FAERS Safety Report 7099834-7 (Version None)
Quarter: 2010Q4

REPORT INFORMATION
  Report Type: 
  Country: None (occurrence: None)
  Receive Date: 20101112
  Receipt Date: 20101104
  Transmission Date: 20110411
  Serious: Yes (Hospitalization)
  Sender: FDA-Public Use
  Company Number: US-US-EMD SERONO, INC.-7026262

PATIENT
  Sex: Male
  Weight: 98 kg

DRUGS (6)
  1. REBIF [Suspect]
     Indication: MULTIPLE SCLEROSIS
     Route: 058
     Dates: start: 20081017
  2. MOTRIN [Concomitant]
     Indication: BACK PAIN
  3. VICODIN [Concomitant]
     Indication: BACK PAIN
  4. TRANXENE [Concomitant]
     Indication: BACK PAIN
  5. LEVOXYL [Concomitant]
     Indication: HYPOTHYROIDISM
  6. AMPYRA [Concomitant]
     Indication: GAIT DISTURBANCE

REACTIONS (2)
  - INJECTION SITE ERYTHEMA [None]
  - LOSS OF CONSCIOUSNESS [None]
